FAERS Safety Report 9657071 (Version 2)
Quarter: 2013Q4

REPORT INFORMATION
  Report Type: Report from Study
  Country: TW (occurrence: TW)
  Receive Date: 20131030
  Receipt Date: 20131030
  Transmission Date: 20140711
  Serious: Yes (Hospitalization)
  Sender: FDA-Public Use
  Company Number: TW-B.I. PHARMACEUTICALS,INC./RIDGEFIELD-2013-RU-00916BP

PATIENT
  Age: 50 Year
  Sex: Male
  Weight: 72.6 kg

DRUGS (10)
  1. BI 1356 [Suspect]
     Indication: TYPE 2 DIABETES MELLITUS
     Dosage: 5 MG
     Route: 048
     Dates: start: 20120321, end: 20130907
  2. TRIAL PROCEDURE [Suspect]
     Indication: TYPE 2 DIABETES MELLITUS
  3. MEPERIDINE [Suspect]
     Indication: PANCREATITIS ACUTE
     Dosage: 200 MG
     Route: 042
     Dates: start: 20130907, end: 20130910
  4. BUSCOPAN [Suspect]
     Indication: ENDOSCOPY
     Dosage: 20 MG
     Route: 042
     Dates: start: 20130910, end: 20130910
  5. GASCON [Suspect]
     Indication: ENDOSCOPY
     Dosage: 20 ML
     Route: 048
     Dates: start: 20130910, end: 20130910
  6. XYLOCAINE 10% [Suspect]
     Indication: ENDOSCOPY
     Dosage: 10 MG
     Route: 048
     Dates: start: 20130910, end: 20130910
  7. ESOMEPRAZOLE [Suspect]
     Indication: GASTRIC ULCER
     Dosage: 40 MG
     Route: 048
     Dates: start: 20130910
  8. PANENDOSCOPY [Suspect]
     Indication: GASTRIC ULCER
     Dates: start: 20130910
  9. CT OF ABDOMEN [Suspect]
     Indication: PANCREATITIS ACUTE
     Dates: start: 20130909, end: 20130909
  10. UNSPECIFIED INGREDIENT [Suspect]
     Indication: PANCREATITIS ACUTE
     Dates: start: 20130907, end: 20130907

REACTIONS (2)
  - Pancreatitis acute [Recovered/Resolved]
  - Gastric ulcer [Recovered/Resolved]
